FAERS Safety Report 23825384 (Version 1)
Quarter: 2024Q2

REPORT INFORMATION
  Report Type: Spontaneous
  Country: US (occurrence: US)
  Receive Date: 20240507
  Receipt Date: 20240507
  Transmission Date: 20240716
  Serious: Yes (Other)
  Sender: FDA-Public Use
  Company Number: US-MYLANLABS-2024M1040242

PATIENT
  Age: 32 Year
  Sex: Female

DRUGS (1)
  1. LISDEXAMFETAMINE DIMESYLATE [Suspect]
     Active Substance: LISDEXAMFETAMINE DIMESYLATE
     Indication: Product used for unknown indication
     Dosage: UNK
     Route: 065
     Dates: start: 202403

REACTIONS (10)
  - Loss of consciousness [Unknown]
  - Myocardial infarction [Unknown]
  - Dehydration [Unknown]
  - Myalgia [Unknown]
  - Pain [Unknown]
  - Disturbance in attention [Unknown]
  - Dizziness [Unknown]
  - Product substitution issue [Unknown]
  - Incorrect dose administered [Unknown]
  - Product dispensing error [Unknown]

NARRATIVE: CASE EVENT DATE: 20240101
